FAERS Safety Report 18093055 (Version 5)
Quarter: 2020Q4

REPORT INFORMATION
  Report Type: Report from Study
  Country: CO (occurrence: CO)
  Receive Date: 20200730
  Receipt Date: 20201203
  Transmission Date: 20210113
  Serious: Yes (Hospitalization)
  Sender: FDA-Public Use
  Company Number: NVSC2020CO203840

PATIENT
  Age: 62 Year
  Sex: Male
  Weight: 52 kg

DRUGS (2)
  1. REVOLADE [Suspect]
     Active Substance: ELTROMBOPAG
     Dosage: 100 MG, Q24H (2 TABLETS OF 50MG/100 MG)
     Route: 048
  2. REVOLADE [Suspect]
     Active Substance: ELTROMBOPAG
     Indication: APLASTIC ANAEMIA
     Dosage: 75 MG, QD
     Route: 048

REACTIONS (6)
  - COVID-19 [Unknown]
  - Epistaxis [Recovered/Resolved]
  - Platelet count decreased [Unknown]
  - Epistaxis [Unknown]
  - Oral mucosal blistering [Unknown]
  - Headache [Recovered/Resolved]

NARRATIVE: CASE EVENT DATE: 20200728
